FAERS Safety Report 11655126 (Version 2)
Quarter: 2015Q4

REPORT INFORMATION
  Report Type: Spontaneous
  Country: NO (occurrence: NO)
  Receive Date: 20151023
  Receipt Date: 20151123
  Transmission Date: 20160304
  Serious: Yes (Death)
  Sender: FDA-Public Use
  Company Number: NO-PFIZER INC-2015342568

PATIENT
  Age: 79 Year
  Sex: Female

DRUGS (1)
  1. XALKORI [Suspect]
     Active Substance: CRIZOTINIB
     Indication: NON-SMALL CELL LUNG CANCER
     Dosage: 250 MG, 2X/DAY (MORNING AND EVENING)
     Route: 048
     Dates: start: 20150804

REACTIONS (3)
  - Product use issue [Unknown]
  - Disease progression [Fatal]
  - Non-small cell lung cancer [Fatal]
